FAERS Safety Report 7389120-X (Version None)
Quarter: 2011Q1

REPORT INFORMATION
  Report Type: 
  Country: None (occurrence: None)
  Receive Date: 20110329
  Receipt Date: 20110329
  Transmission Date: 20110831
  Serious: Yes (Hospitalization)
  Sender: FDA-Public Use
  Company Number: None

PATIENT
  Sex: Female
  Weight: 53.978 kg

DRUGS (1)
  1. BONIVA [Suspect]
     Dosage: 1 PILL 1 MO. 5AM

REACTIONS (4)
  - DIARRHOEA [None]
  - STRESS [None]
  - NECK PAIN [None]
  - MUSCLE TIGHTNESS [None]
